FAERS Safety Report 10778134 (Version 2)
Quarter: 2015Q4

REPORT INFORMATION
  Report Type: Report from Study
  Country: IT (occurrence: IT)
  Receive Date: 20150209
  Receipt Date: 20151026
  Transmission Date: 20160304
  Serious: No
  Sender: FDA-Public Use
  Company Number: IT-ABBVIE-15P-083-1335519-00

PATIENT
  Sex: Female
  Weight: 72 kg

DRUGS (1)
  1. DUODOPA [Suspect]
     Active Substance: CARBIDOPA\LEVODOPA
     Indication: PARKINSON^S DISEASE
     Dosage: MD 10 (+3); CR 3.5; ED 2.5
     Route: 050
     Dates: start: 20131204

REACTIONS (1)
  - Granuloma [Not Recovered/Not Resolved]
